FAERS Safety Report 11802480 (Version 6)
Quarter: 2016Q1

REPORT INFORMATION
  Report Type: Spontaneous
  Country: FR (occurrence: FR)
  Receive Date: 20151204
  Receipt Date: 20160317
  Transmission Date: 20160525
  Serious: Yes (Life-Threatening, Hospitalization)
  Sender: FDA-Public Use
  Company Number: FR-PFIZER INC-2015375429

PATIENT
  Age: 35 Year
  Sex: Female
  Weight: 94 kg

DRUGS (2)
  1. MINIDRIL [Suspect]
     Active Substance: ETHINYL ESTRADIOL\LEVONORGESTREL
     Indication: CONTRACEPTION
     Dosage: 1 DF (150 MICROGR/30 MICROGR), 1X/DAY IN THE EVENING
     Route: 048
     Dates: start: 20100507, end: 20150827
  2. LEVOTHYROX [Concomitant]
     Active Substance: LEVOTHYROXINE
     Indication: HYPOTHYROIDISM
     Dosage: 150 UG, 1X/DAY
     Route: 048
     Dates: start: 20080812

REACTIONS (3)
  - Pulmonary embolism [Recovered/Resolved]
  - Phlebitis [Recovered/Resolved]
  - Deep vein thrombosis [Recovered/Resolved]

NARRATIVE: CASE EVENT DATE: 201508
